FAERS Safety Report 7137810-6 (Version None)
Quarter: 2010Q4

REPORT INFORMATION
  Report Type: 
  Country: None (occurrence: None)
  Receive Date: 20101206
  Receipt Date: 20101123
  Transmission Date: 20110411
  Serious: Yes (Other)
  Sender: FDA-Public Use
  Company Number: CA-ELI_LILLY_AND_COMPANY-CA201010004648

PATIENT
  Sex: Female
  Weight: 52 kg

DRUGS (12)
  1. ADCIRCA [Suspect]
     Indication: PULMONARY ARTERIAL HYPERTENSION
     Dosage: 40 MG, DAILY (1/D)
     Route: 048
     Dates: start: 20101022
  2. ADCIRCA [Suspect]
     Dosage: 5 MG, DAILY (1/D)
  3. REVATIO [Concomitant]
     Dosage: 20 MG, 3/D
  4. ASPIRIN [Concomitant]
     Dosage: 81 MG, UNK
  5. PLAVIX [Concomitant]
     Dosage: 75 MG, DAILY (1/D)
  6. LEVOTHYROXINE SODIUM [Concomitant]
     Dosage: 50 UG, DAILY (1/D)
  7. LASIX [Concomitant]
     Dosage: 60 MG, DAILY (1/D)
  8. MICRO-K [Concomitant]
     Dosage: 16 MEQ, 2/D
  9. HYDROXYUREA [Concomitant]
     Dosage: 500 MG, 2/D
  10. LIPITOR [Concomitant]
     Dosage: 40 D/F, UNK
  11. ALLOPURINOL [Concomitant]
     Dosage: 100 MG, DAILY (1/D)
  12. CITALOPRAM [Concomitant]
     Dosage: 20 MG, DAILY (1/D)

REACTIONS (7)
  - BLOOD PRESSURE SYSTOLIC DECREASED [None]
  - DIARRHOEA [None]
  - DRUG INTERACTION [None]
  - HEADACHE [None]
  - INTENTIONAL DRUG MISUSE [None]
  - LOSS OF CONSCIOUSNESS [None]
  - WRONG TECHNIQUE IN DRUG USAGE PROCESS [None]
